FAERS Safety Report 25032224 (Version 1)
Quarter: 2025Q1

REPORT INFORMATION
  Report Type: Report from Study
  Country: US (occurrence: US)
  Receive Date: 20250303
  Receipt Date: 20250303
  Transmission Date: 20250409
  Serious: Yes (Hospitalization)
  Sender: JAZZ
  Company Number: US-JAZZ PHARMACEUTICALS-2025-US-004234

PATIENT
  Age: 29 Year
  Sex: Male

DRUGS (1)
  1. XYWAV [Suspect]
     Active Substance: CALCIUM OXYBATE\MAGNESIUM OXYBATE\POTASSIUM OXYBATE\SODIUM OXYBATE
     Indication: Hypersomnia
     Dosage: 2.25 GRAM, BID
     Route: 048
     Dates: start: 20250212, end: 20250214

REACTIONS (7)
  - Chest pain [Recovered/Resolved]
  - Skin discolouration [Recovered/Resolved]
  - Anxiety [Recovered/Resolved]
  - Psychotic disorder [Recovered/Resolved]
  - Parosmia [Recovering/Resolving]
  - Taste disorder [Recovering/Resolving]
  - Nausea [Recovering/Resolving]

NARRATIVE: CASE EVENT DATE: 20250213
